FAERS Safety Report 10193868 (Version 1)
Quarter: 2014Q2

REPORT INFORMATION
  Report Type: Spontaneous
  Country: US (occurrence: US)
  Receive Date: 20140524
  Receipt Date: 20140524
  Transmission Date: 20141212
  Serious: No
  Sender: FDA-Public Use
  Company Number: US-SANOFI-AVENTIS-2013SA049525

PATIENT
  Age: 86 Year
  Sex: Male

DRUGS (4)
  1. LANTUS [Suspect]
     Indication: TYPE 1 DIABETES MELLITUS
     Dosage: START DATE: 5+ YEARS AGO.?DAILY DOSE: 4-5 UNITS DAILY
     Route: 051
  2. LANTUS SOLOSTAR [Suspect]
     Indication: TYPE 1 DIABETES MELLITUS
     Dosage: START DATE: 1 WEEK AGO?DOSE: 4-5 UNITS DAILY
     Route: 051
     Dates: start: 201305
  3. SOLOSTAR [Suspect]
     Dosage: START DATE: 1 WEEK AGO
     Dates: start: 201305
  4. HUMALOG [Concomitant]

REACTIONS (2)
  - Visual impairment [Unknown]
  - Blood glucose increased [Unknown]
